FAERS Safety Report 8595314-8 (Version None)
Quarter: 2012Q3

REPORT INFORMATION
  Report Type: 
  Country: None (occurrence: None)
  Receive Date: 20120815
  Receipt Date: 20110706
  Transmission Date: 20120928
  Serious: No
  Sender: FDA-Public Use
  Company Number: US-PFIZER INC-2011153052

PATIENT
  Sex: Female
  Weight: 58.957 kg

DRUGS (3)
  1. ALEVE [Concomitant]
     Dosage: UNK
  2. PENICILLIN G PROCAINE [Suspect]
     Dosage: UNK
  3. ZYRTEC [Concomitant]
     Dosage: UNK

REACTIONS (1)
  - HYPERSENSITIVITY [None]
